FAERS Safety Report 10478712 (Version 1)
Quarter: 2014Q3

REPORT INFORMATION
  Report Type: Spontaneous
  Country: US (occurrence: None)
  Receive Date: 20140924
  Receipt Date: 20140924
  Transmission Date: 20150326
  Serious: Yes (Death, Life-Threatening, Hospitalization)
  Sender: FDA-Public Use
  Company Number: 2014PAC00039

PATIENT
  Age: 46 Year
  Sex: Female

DRUGS (3)
  1. AMLODIPINE [Suspect]
     Active Substance: AMLODIPINE BESYLATE
  2. ZOLPIDEM (ZOLPIDEM) [Suspect]
     Active Substance: ZOLPIDEM TARTRATE
  3. ATENOLOL (ATENOLOL) UNKNOWN [Suspect]
     Active Substance: ATENOLOL

REACTIONS (8)
  - Cardiac arrest [None]
  - Multi-organ failure [None]
  - Cardiogenic shock [None]
  - Intestinal ischaemia [None]
  - Overdose [None]
  - Bradycardia [None]
  - Lactic acidosis [None]
  - Renal failure [None]
